FAERS Safety Report 12980572 (Version 2)
Quarter: 2016Q4

REPORT INFORMATION
  Report Type: Spontaneous
  Country: DE (occurrence: DE)
  Receive Date: 20161128
  Receipt Date: 20161201
  Transmission Date: 20170207
  Serious: Yes (Death, Hospitalization)
  Sender: FDA-Public Use
  Company Number: DE-SA-2016SA215585

PATIENT
  Age: 41 Year
  Sex: Female

DRUGS (2)
  1. LEMTRADA [Suspect]
     Active Substance: ALEMTUZUMAB
     Indication: MULTIPLE SCLEROSIS
     Route: 041
     Dates: start: 201511, end: 201511
  2. LEMTRADA [Suspect]
     Active Substance: ALEMTUZUMAB
     Indication: MULTIPLE SCLEROSIS
     Route: 041
     Dates: start: 201411, end: 201411

REACTIONS (10)
  - Multiple organ dysfunction syndrome [Fatal]
  - Juvenile idiopathic arthritis [Unknown]
  - Pyrexia [Unknown]
  - Clostridium colitis [Unknown]
  - Neutropenic colitis [Unknown]
  - Device breakage [Unknown]
  - Infection [Unknown]
  - Bronchopulmonary aspergillosis [Unknown]
  - Agranulocytosis [Unknown]
  - Blood lactic acid increased [Unknown]

NARRATIVE: CASE EVENT DATE: 2016
